FAERS Safety Report 7216282-7 (Version None)
Quarter: 2011Q1

REPORT INFORMATION
  Report Type: 
  Country: None (occurrence: None)
  Receive Date: 20110107
  Receipt Date: 20110103
  Transmission Date: 20110831
  Serious: Yes (Life-Threatening)
  Sender: FDA-Public Use
  Company Number: FR-JNJFOC-20110100168

PATIENT
  Age: 8 Month
  Sex: Male

DRUGS (1)
  1. DURAGESIC-100 [Suspect]
     Indication: ACCIDENTAL EXPOSURE
     Route: 002

REACTIONS (7)
  - SOMNOLENCE [None]
  - HYPOTONIA [None]
  - GAZE PALSY [None]
  - HYPERVENTILATION [None]
  - OFF LABEL USE [None]
  - ACCIDENTAL DRUG INTAKE BY CHILD [None]
  - MIOSIS [None]
